FAERS Safety Report 26173937 (Version 1)
Quarter: 2025Q4

REPORT INFORMATION
  Report Type: Spontaneous
  Country: EU (occurrence: EU)
  Receive Date: 20251218
  Receipt Date: 20251218
  Transmission Date: 20260117
  Serious: Yes (Hospitalization, Other)
  Sender: HIKMA
  Company Number: None

PATIENT
  Age: 3 Year
  Sex: Male
  Weight: 15 kg

DRUGS (4)
  1. CYTARABINE [Suspect]
     Active Substance: CYTARABINE
     Indication: B-cell type acute leukaemia
     Dosage: ARA-C: 48 MG/DAY FOR 2 CYCLES: FROM 08/12 TO 08/15 AND FROM 08/19 TO 08/22
     Route: 042
     Dates: start: 20250812, end: 20250822
  2. CYCLOPHOSPHAMIDE [Suspect]
     Active Substance: CYCLOPHOSPHAMIDE
     Indication: B-cell type acute leukaemia
     Dosage: ENDOXAN: 640 MG ON 11/08 AND 25/08
     Route: 042
     Dates: start: 20250811, end: 20250825
  3. METHOTREXATE [Suspect]
     Active Substance: METHOTREXATE
     Indication: B-cell type acute leukaemia
     Dosage: 10 MG IN MEDICATED PL
     Route: 037
     Dates: start: 20250812
  4. PURINETHOL [Suspect]
     Active Substance: MERCAPTOPURINE
     Indication: B-cell type acute leukaemia
     Dosage: PURINETHOL 50 MG TABLET: 3/4 TABLET PER DAY ORALLY
     Route: 048
     Dates: start: 20250811

REACTIONS (2)
  - Febrile neutropenia [Recovered/Resolved]
  - Diarrhoea [Recovered/Resolved]

NARRATIVE: CASE EVENT DATE: 20250829
